FAERS Safety Report 9549158 (Version 1)
Quarter: 2013Q3

REPORT INFORMATION
  Report Type: Spontaneous
  Country: US (occurrence: None)
  Receive Date: 20130923
  Receipt Date: 20130923
  Transmission Date: 20140515
  Serious: Yes (Other)
  Sender: FDA-Public Use
  Company Number: None

PATIENT
  Age: 74 Year
  Sex: Female
  Weight: 64.86 kg

DRUGS (1)
  1. CLARITIN [Suspect]
     Indication: HYPERSENSITIVITY
     Dosage: 1 PILL
     Route: 048

REACTIONS (6)
  - Burning sensation [None]
  - Dry mouth [None]
  - Oropharyngeal pain [None]
  - Middle insomnia [None]
  - Ocular hyperaemia [None]
  - Malaise [None]
